FAERS Safety Report 6278188-X (Version None)
Quarter: 2009Q3

REPORT INFORMATION
  Report Type: 
  Country: None (occurrence: None)
  Receive Date: 20090722
  Receipt Date: 20090708
  Transmission Date: 20100115
  Serious: Yes (Disabling, Other)
  Sender: FDA-Public Use
  Company Number: CA-PFIZER INC-2009237537

PATIENT
  Age: 66 Year

DRUGS (2)
  1. VARENICLINE TARTRATE [Suspect]
     Indication: SMOKING CESSATION THERAPY
  2. FLUOXETINE [Interacting]
     Indication: DEPRESSION
     Dosage: 20 MG, UNK

REACTIONS (3)
  - DEPRESSION [None]
  - DRUG INTERACTION [None]
  - TREMOR [None]
